FAERS Safety Report 10015263 (Version 2)
Quarter: 2014Q1

REPORT INFORMATION
  Report Type: Spontaneous
  Country: US (occurrence: US)
  Receive Date: 20140317
  Receipt Date: 20140317
  Transmission Date: 20141002
  Serious: No
  Sender: FDA-Public Use
  Company Number: US-BAXTER-2014BAX012289

PATIENT
  Age: 74 Year
  Sex: Male

DRUGS (2)
  1. DIANEAL LOW CALCIUM [Suspect]
     Indication: NEPHROPATHY
     Dosage: 2 BAGS OF 6000 ML
     Route: 033
     Dates: start: 201011
  2. DIANEAL LOW CALCIUM [Suspect]
     Indication: NEPHROPATHY
     Dosage: 2 BAGS OF 6000 ML
     Route: 033
     Dates: start: 201011

REACTIONS (1)
  - Hypoglycaemia [Recovered/Resolved]
